FAERS Safety Report 8737627 (Version 3)
Quarter: 2012Q4

REPORT INFORMATION
  Report Type: 
  Country: JP (occurrence: JP)
  Receive Date: 20120822
  Receipt Date: 20121127
  Transmission Date: 20130627
  Serious: Yes (Other)
  Sender: FDA-Public Use
  Company Number: JP-009507513-1208JPN001471

PATIENT
  Age: 59 Year
  Sex: Female
  Weight: 46 kg

DRUGS (9)
  1. PEGINTRON [Suspect]
     Indication: CHRONIC HEPATITIS C
     Dosage: 1.5mcg/kg, qw
     Route: 058
     Dates: start: 20120517, end: 20120628
  2. PEGINTRON [Suspect]
     Dosage: 0.75 Microgram per kilogram, weekly
     Route: 058
     Dates: start: 20120705, end: 20120705
  3. REBETOL [Suspect]
     Indication: CHRONIC HEPATITIS C
     Dosage: 600 mg, qd
     Route: 048
     Dates: start: 20120517, end: 20120606
  4. REBETOL [Suspect]
     Dosage: 200 mg, qd
     Route: 048
     Dates: start: 20120607, end: 20120627
  5. TELAVIC [Suspect]
     Indication: CHRONIC HEPATITIS C
     Dosage: 2250mg, qd
     Route: 048
     Dates: start: 20120517, end: 20120620
  6. TELAVIC [Suspect]
     Dosage: 1500 mg, qd
     Route: 048
     Dates: start: 20120621, end: 20120704
  7. URSO [Concomitant]
     Indication: CHRONIC HEPATITIS C
     Dosage: 600 mg, qd, Formulation: POR
     Route: 048
     Dates: end: 20120613
  8. GLYCYRON [Concomitant]
     Indication: CHRONIC HEPATITIS C
     Dosage: 3 DF, qd
     Route: 048
     Dates: end: 20120613
  9. GLYCYRON [Concomitant]
     Dosage: 3 DF, qd
     Route: 048
     Dates: start: 20121025

REACTIONS (2)
  - Hypercreatininaemia [Not Recovered/Not Resolved]
  - Depressive symptom [Recovering/Resolving]
